FAERS Safety Report 7407944-7 (Version None)
Quarter: 2011Q2

REPORT INFORMATION
  Report Type: 
  Country: None (occurrence: None)
  Receive Date: 20110412
  Receipt Date: 20110407
  Transmission Date: 20111010
  Serious: No
  Sender: FDA-Public Use
  Company Number: US-PFIZER INC-2011077632

PATIENT
  Sex: Female
  Weight: 53.515 kg

DRUGS (2)
  1. CELEBREX [Suspect]
     Indication: BACK INJURY
  2. CELEBREX [Suspect]
     Indication: NECK INJURY
     Dosage: 100 MG, DAILY
     Route: 048
     Dates: start: 20100618, end: 20110301

REACTIONS (2)
  - DRUG INEFFECTIVE [None]
  - CHEST PAIN [None]
